FAERS Safety Report 5763488-X (Version None)
Quarter: 2008Q2

REPORT INFORMATION
  Report Type: 
  Country: None (occurrence: None)
  Receive Date: 20080604
  Receipt Date: 20080604
  Transmission Date: 20081010
  Serious: No
  Sender: FDA-Public Use
  Company Number: None

PATIENT
  Age: 66 Year
  Sex: Male
  Weight: 83 kg

DRUGS (2)
  1. DALTEPARIN SODIUM [Suspect]
     Indication: EMBOLISM VENOUS
     Dosage: 15,000 UNITS EVERY DAY SQ
     Route: 058
     Dates: start: 20080529, end: 20080601
  2. DALTEPARIN SODIUM [Suspect]
     Indication: NEOPLASM MALIGNANT
     Dosage: 15,000 UNITS EVERY DAY SQ
     Route: 058
     Dates: start: 20080529, end: 20080601

REACTIONS (1)
  - OEDEMA PERIPHERAL [None]
